FAERS Safety Report 13524851 (Version 1)
Quarter: 2017Q2

REPORT INFORMATION
  Report Type: Spontaneous
  Country: US (occurrence: US)
  Receive Date: 20170508
  Receipt Date: 20170508
  Transmission Date: 20170830
  Serious: No
  Sender: FDA-Public Use
  Company Number: US-ROCHE-1126603

PATIENT
  Age: 53 Year
  Sex: Female

DRUGS (13)
  1. ZOMETA [Concomitant]
     Active Substance: ZOLEDRONIC ACID
     Route: 065
     Dates: start: 20051108, end: 20060207
  2. ZOMETA [Concomitant]
     Active Substance: ZOLEDRONIC ACID
     Route: 065
     Dates: start: 20050715, end: 20051025
  3. TAXOL [Concomitant]
     Active Substance: PACLITAXEL
  4. AVASTIN [Suspect]
     Active Substance: BEVACIZUMAB
     Indication: BREAST CANCER FEMALE
     Route: 065
     Dates: start: 20060418
  5. ZOMETA [Concomitant]
     Active Substance: ZOLEDRONIC ACID
     Route: 065
     Dates: start: 20050314, end: 20050513
  6. ABRAXANE [Concomitant]
     Active Substance: PACLITAXEL
     Route: 065
     Dates: start: 20050715, end: 20051025
  7. EPIRUBICIN [Concomitant]
     Active Substance: EPIRUBICIN
  8. 5-FLUOROURACIL [Concomitant]
     Active Substance: FLUOROURACIL
     Route: 065
     Dates: start: 20050314, end: 20050513
  9. CARBOPLATIN. [Concomitant]
     Active Substance: CARBOPLATIN
     Route: 065
     Dates: start: 20051108, end: 20060207
  10. GEMZAR [Concomitant]
     Active Substance: GEMCITABINE HYDROCHLORIDE
  11. AVASTIN [Suspect]
     Active Substance: BEVACIZUMAB
     Indication: LUNG NEOPLASM MALIGNANT
  12. XELODA [Concomitant]
     Active Substance: CAPECITABINE
  13. NAVELBINE [Concomitant]
     Active Substance: VINORELBINE TARTRATE

REACTIONS (6)
  - Anxiety [Unknown]
  - Hallucination [Unknown]
  - Mental status changes [Unknown]
  - Dyspnoea [Unknown]
  - Fatigue [Unknown]
  - Pain [Unknown]

NARRATIVE: CASE EVENT DATE: 20060506
